FAERS Safety Report 17737177 (Version 1)
Quarter: 2020Q2

REPORT INFORMATION
  Report Type: Spontaneous
  Country: US (occurrence: US)
  Receive Date: 20200502
  Receipt Date: 20200502
  Transmission Date: 20200714
  Serious: No
  Sender: FDA-Public Use
  Company Number: US-TEVA-2020-US-1230583

PATIENT
  Sex: Male

DRUGS (6)
  1. AZATHIOPRINE. [Concomitant]
     Active Substance: AZATHIOPRINE
  2. DALFAMPRIDINE. [Concomitant]
     Active Substance: DALFAMPRIDINE
  3. LISINOPRIL. [Concomitant]
     Active Substance: LISINOPRIL
  4. AMLODIPINE [Concomitant]
     Active Substance: AMLODIPINE BESYLATE
  5. AMLOD/VALSAR [Concomitant]
  6. COPAXONE [Suspect]
     Active Substance: GLATIRAMER ACETATE
     Indication: MULTIPLE SCLEROSIS
     Dosage: FREQUENCY: DAILY
     Route: 058
     Dates: start: 20170802

REACTIONS (1)
  - Hypoaesthesia [Not Recovered/Not Resolved]
